FAERS Safety Report 8299825-4 (Version None)
Quarter: 2012Q2

REPORT INFORMATION
  Report Type: 
  Country: None (occurrence: None)
  Receive Date: 20120419
  Receipt Date: 20120410
  Transmission Date: 20120825
  Serious: Yes (Hospitalization, Other)
  Sender: FDA-Public Use
  Company Number: DE-RB-038973-12

PATIENT
  Age: 91 Year
  Sex: Female

DRUGS (8)
  1. BUPRENORPHINE [Suspect]
     Indication: PAIN
     Dosage: DOSING DETAILS NOT PROVIDED
     Route: 062
  2. LEVOFLOXACIN [Suspect]
     Indication: BACTERIAL INFECTION
     Dosage: DOSING DETAILS NOT PROVIDED
     Route: 065
  3. TRAMADOL [Concomitant]
     Indication: PRODUCT USED FOR UNKNOWN INDICATION
  4. HEPARIN [Concomitant]
     Indication: CEREBROVASCULAR ACCIDENT
     Dosage: DOSING DETAIL NOT PROVIDED
     Route: 065
  5. ACETYLSALICYLIC ACID SRT [Concomitant]
     Indication: PRODUCT USED FOR UNKNOWN INDICATION
     Route: 048
  6. METFORMIN/GLIBENCLAMIDE [Concomitant]
     Indication: DIABETES MELLITUS
     Dosage: 400MG/2.5MG
     Route: 065
  7. NADROPARIN [Concomitant]
     Indication: PRODUCT USED FOR UNKNOWN INDICATION
     Route: 065
  8. ENALAPRIL MALEATE AND HYDROCHLOROTHIAZIDE [Concomitant]
     Indication: HYPERTENSION
     Dosage: 20MG/12.5MG ONCE DAILY
     Route: 048

REACTIONS (7)
  - ARTERIAL THROMBOSIS LIMB [None]
  - COMA [None]
  - DRUG INTERACTION [None]
  - HYPOGLYCAEMIA [None]
  - SKIN WARM [None]
  - LOCALISED INFECTION [None]
  - HYPERHIDROSIS [None]
